FAERS Safety Report 24538001 (Version 1)
Quarter: 2024Q4

REPORT INFORMATION
  Report Type: Spontaneous
  Country: US (occurrence: US)
  Receive Date: 20241023
  Receipt Date: 20241023
  Transmission Date: 20250114
  Serious: No
  Sender: GLENMARK
  Company Number: US-GLENMARK PHARMACEUTICALS-2024GMK090186

PATIENT

DRUGS (1)
  1. APREPITANT [Suspect]
     Active Substance: APREPITANT
     Indication: Nausea
     Dosage: UNK (SHE TOOK 3 CAPSULES) EVERY OTHER DAY
     Route: 065

REACTIONS (2)
  - Product communication issue [Unknown]
  - Drug ineffective for unapproved indication [Unknown]
